FAERS Safety Report 5226051-5 (Version None)
Quarter: 2007Q1

REPORT INFORMATION
  Report Type: 
  Country: None (occurrence: None)
  Receive Date: 20070129
  Receipt Date: 20070117
  Transmission Date: 20070707
  Serious: Yes (Hospitalization)
  Sender: FDA-Public Use
  Company Number: 2006SP008818

PATIENT
  Age: 72 Year
  Sex: Female
  Weight: 84.5 kg

DRUGS (8)
  1. TEMODAR [Suspect]
     Indication: GLIOBLASTOMA MULTIFORME
     Dosage: 140 MG;PO
     Route: 048
     Dates: start: 20061019, end: 20061124
  2. TEMODAR [Suspect]
  3. RADIATION [Concomitant]
  4. DEXAMETHASONE TAB [Concomitant]
  5. CIPRO [Concomitant]
  6. PEPCID [Concomitant]
  7. POTASSIUM ACETATE [Concomitant]
  8. CITALOPRAM HYDROBROMIDE [Concomitant]

REACTIONS (13)
  - ASTHENIA [None]
  - CEREBELLAR ATROPHY [None]
  - DEPRESSED LEVEL OF CONSCIOUSNESS [None]
  - ENTEROCOCCAL INFECTION [None]
  - EPISTAXIS [None]
  - FALL [None]
  - LETHARGY [None]
  - NEUTROPENIC INFECTION [None]
  - ORAL INTAKE REDUCED [None]
  - PERIPHERAL MOTOR NEUROPATHY [None]
  - PLATELET COUNT DECREASED [None]
  - URINARY TRACT INFECTION [None]
  - WHITE BLOOD CELL COUNT DECREASED [None]
